FAERS Safety Report 19128843 (Version 1)
Quarter: 2021Q2

REPORT INFORMATION
  Report Type: Spontaneous
  Country: US (occurrence: US)
  Receive Date: 20210413
  Receipt Date: 20210413
  Transmission Date: 20210717
  Serious: No
  Sender: FDA-Public Use
  Company Number: US-ALLERGAN-2106112US

PATIENT
  Age: 78 Year
  Sex: Male

DRUGS (13)
  1. COMBIGAN [Suspect]
     Active Substance: BRIMONIDINE TARTRATE\TIMOLOL MALEATE
     Dosage: 2 GTT, BID
     Route: 047
     Dates: start: 20200220
  2. ROCKLATAN [Concomitant]
     Active Substance: LATANOPROST\NETARSUDIL MESYLATE
     Indication: PIGMENTARY GLAUCOMA
     Dosage: UNK
     Route: 047
     Dates: start: 20200220
  3. SIMVASTATIN. [Concomitant]
     Active Substance: SIMVASTATIN
     Indication: HYPERCHOLESTEROLAEMIA
  4. TAMSULOSIN [Concomitant]
     Active Substance: TAMSULOSIN
  5. LUMIGAN [Suspect]
     Active Substance: BIMATOPROST
     Indication: PIGMENTARY GLAUCOMA
     Dosage: 2 GTT, QHS
     Route: 047
     Dates: start: 20200220
  6. LISINOPRIL. [Concomitant]
     Active Substance: LISINOPRIL
     Indication: HYPERTENSION
  7. IPRATROPIUM [Concomitant]
     Active Substance: IPRATROPIUM
     Route: 045
  8. METOPROLOL. [Concomitant]
     Active Substance: METOPROLOL
  9. CLOPIDOGREL [Concomitant]
     Active Substance: CLOPIDOGREL BISULFATE
  10. GENERIC AVADART [Concomitant]
  11. COMBIGAN [Suspect]
     Active Substance: BRIMONIDINE TARTRATE\TIMOLOL MALEATE
     Indication: PIGMENTARY GLAUCOMA
     Dosage: 2 GTT, BID, IN THE MORNING AND IN THE EVENING
     Route: 047
     Dates: start: 202003, end: 20210312
  12. LUMIGAN [Suspect]
     Active Substance: BIMATOPROST
     Dosage: 2 GTT, QHS
     Route: 047
     Dates: start: 202003
  13. GENERIC FLOMAX [Concomitant]

REACTIONS (13)
  - Eyelid skin dryness [Not Recovered/Not Resolved]
  - Ocular hyperaemia [Not Recovered/Not Resolved]
  - Periorbital swelling [Not Recovered/Not Resolved]
  - Dry skin [Unknown]
  - Incorrect dose administered [Unknown]
  - Lacrimation increased [Not Recovered/Not Resolved]
  - Eyelid exfoliation [Not Recovered/Not Resolved]
  - Swelling of eyelid [Not Recovered/Not Resolved]
  - Eye irritation [Not Recovered/Not Resolved]
  - Skin burning sensation [Not Recovered/Not Resolved]
  - Eye pain [Not Recovered/Not Resolved]
  - Accidental exposure to product [Unknown]
  - Erythema of eyelid [Not Recovered/Not Resolved]

NARRATIVE: CASE EVENT DATE: 2020
